FAERS Safety Report 7379910-1 (Version None)
Quarter: 2011Q1

REPORT INFORMATION
  Report Type: 
  Country: None (occurrence: None)
  Receive Date: 20110329
  Receipt Date: 20110321
  Transmission Date: 20110831
  Serious: Yes (Death)
  Sender: FDA-Public Use
  Company Number: US-AMGEN-USASP2011015200

PATIENT
  Age: 67 Year
  Sex: Male

DRUGS (2)
  1. ARANESP [Suspect]
     Indication: ANAEMIA
     Dosage: UNK
  2. ARANESP [Suspect]
     Indication: RENAL FAILURE CHRONIC

REACTIONS (1)
  - DEATH [None]
